FAERS Safety Report 20186222 (Version 1)
Quarter: 2021Q4

REPORT INFORMATION
  Report Type: Spontaneous
  Country: PL (occurrence: PL)
  Receive Date: 20211215
  Receipt Date: 20211215
  Transmission Date: 20220303
  Serious: Yes (Hospitalization, Other)
  Sender: FDA-Public Use
  Company Number: PL-002147023-NVSC2021PL267628

PATIENT
  Age: 30 Year
  Sex: Male

DRUGS (5)
  1. CARVEDILOL [Suspect]
     Active Substance: CARVEDILOL
     Indication: Product used for unknown indication
     Dosage: 25 MILLIGRAM, ONCE A DAY(12.5 MG, BID)
     Route: 065
  2. RAMIPRIL [Suspect]
     Active Substance: RAMIPRIL
     Indication: Product used for unknown indication
     Dosage: 5 MILLIGRAM
     Route: 065
  3. SACUBITRIL\VALSARTAN [Suspect]
     Active Substance: SACUBITRIL\VALSARTAN
     Indication: Product used for unknown indication
     Dosage: UNK
     Route: 065
  4. TORSEMIDE [Suspect]
     Active Substance: TORSEMIDE
     Indication: Product used for unknown indication
     Dosage: 10 MILLIGRAM
     Route: 016
  5. EPLERENONE [Concomitant]
     Active Substance: EPLERENONE
     Indication: Product used for unknown indication
     Dosage: 50 MILLIGRAM
     Route: 065

REACTIONS (14)
  - Ventricular hypokinesia [Unknown]
  - Cardiovascular insufficiency [Unknown]
  - Intracardiac thrombus [Unknown]
  - Cardiac failure [Unknown]
  - Congestive cardiomyopathy [Unknown]
  - Dyspnoea [Unknown]
  - Cardiomegaly [Unknown]
  - Tricuspid valve incompetence [Unknown]
  - Oedema [Unknown]
  - Mitral valve incompetence [Unknown]
  - Inappropriate schedule of product administration [Unknown]
  - Nocturnal dyspnoea [Unknown]
  - Pleural effusion [Unknown]
  - Left ventricular hypertrophy [Unknown]

NARRATIVE: CASE EVENT DATE: 20160101
